FAERS Safety Report 8768575 (Version 2)
Quarter: 2013Q3

REPORT INFORMATION
  Report Type: Report from Study
  Country: GB (occurrence: GB)
  Receive Date: 20120906
  Receipt Date: 20130702
  Transmission Date: 20140515
  Serious: Yes (Other)
  Sender: FDA-Public Use
  Company Number: GB-ROCHE-1109368

PATIENT
  Age: 67 Year
  Sex: Female

DRUGS (4)
  1. RANIBIZUMAB [Suspect]
     Indication: AGE-RELATED MACULAR DEGENERATION
     Dosage: LAST DOSE PRIOR TO SAE ON 26/JUL/2012
     Route: 050
     Dates: start: 20120209
  2. CITALOPRAM [Concomitant]
     Indication: ANXIETY
     Route: 065
     Dates: start: 20120823
  3. CANDESARTAN [Concomitant]
     Indication: HYPERTENSION
     Route: 065
     Dates: start: 20120823
  4. LEVOTHYROXINE [Concomitant]
     Indication: HYPOTHYROIDISM
     Route: 065
     Dates: start: 20120823

REACTIONS (2)
  - Retinal haemorrhage [Not Recovered/Not Resolved]
  - Depressed mood [Unknown]
